FAERS Safety Report 7551007-7 (Version None)
Quarter: 2011Q2

REPORT INFORMATION
  Report Type: 
  Country: None (occurrence: None)
  Receive Date: 20110616
  Receipt Date: 20110602
  Transmission Date: 20111010
  Serious: Yes (Hospitalization)
  Sender: FDA-Public Use
  Company Number: US-ELI_LILLY_AND_COMPANY-US201103002150

PATIENT
  Age: 78 Year
  Sex: Female

DRUGS (2)
  1. ANALGESICS [Concomitant]
     Indication: BACK PAIN
  2. FORTEO [Suspect]
     Indication: OSTEOPOROSIS
     Dosage: 20 UG, DAILY (1/D)
     Dates: start: 20110202

REACTIONS (3)
  - JOINT SPRAIN [None]
  - RHINORRHOEA [None]
  - FALL [None]
